FAERS Safety Report 9457993 (Version 1)
Quarter: 2013Q3

REPORT INFORMATION
  Report Type: Spontaneous
  Country: None (occurrence: US)
  Receive Date: 20130814
  Receipt Date: 20130814
  Transmission Date: 20140515
  Serious: No
  Sender: FDA-Public Use
  Company Number: US-TEVA-426172USA

PATIENT
  Sex: Female
  Weight: 90.8 kg

DRUGS (3)
  1. NUVIGIL [Suspect]
     Dates: start: 2007
  2. NEURONTIN [Concomitant]
     Indication: MIGRAINE
  3. TOPAMAX [Concomitant]
     Indication: MIGRAINE

REACTIONS (1)
  - Headache [Recovered/Resolved]
